FAERS Safety Report 14662079 (Version 2)
Quarter: 2018Q1

REPORT INFORMATION
  Report Type: Spontaneous
  Country: KR (occurrence: KR)
  Receive Date: 20180321
  Receipt Date: 20180326
  Transmission Date: 20180509
  Serious: Yes (Other)
  Sender: FDA-Public Use
  Company Number: KR-009507513-1802KOR006890

PATIENT
  Age: 56 Year
  Sex: Female

DRUGS (1)
  1. ZEPATIER [Suspect]
     Active Substance: ELBASVIR\GRAZOPREVIR
     Indication: ACUTE HEPATITIS C
     Dosage: UNK
     Route: 048
     Dates: start: 2018, end: 2018

REACTIONS (13)
  - Joint stiffness [Unknown]
  - Oedema [Unknown]
  - Neuralgia [Unknown]
  - Spinal pain [Unknown]
  - Musculoskeletal stiffness [Unknown]
  - Drug prescribing error [Unknown]
  - Peripheral swelling [Unknown]
  - Pain [Unknown]
  - Myalgia [Unknown]
  - Impaired quality of life [Unknown]
  - Pain in extremity [Unknown]
  - Dysstasia [Unknown]
  - Rheumatoid arthritis [Unknown]

NARRATIVE: CASE EVENT DATE: 2018
